FAERS Safety Report 5823118-5 (Version None)
Quarter: 2008Q3

REPORT INFORMATION
  Report Type: 
  Country: None (occurrence: None)
  Receive Date: 20080724
  Receipt Date: 20080724
  Transmission Date: 20090109
  Serious: Yes (Hospitalization)
  Sender: FDA-Public Use
  Company Number: None

PATIENT
  Age: 45 Year
  Sex: Female
  Weight: 47.6277 kg

DRUGS (1)
  1. TOPAMAX [Suspect]
     Indication: MIGRAINE
     Dosage: 100 MG. DAILY
     Dates: start: 20070101, end: 20080101

REACTIONS (5)
  - CHEST PAIN [None]
  - DYSARTHRIA [None]
  - HEART RATE INCREASED [None]
  - HYPOAESTHESIA [None]
  - HYPOAESTHESIA FACIAL [None]
